FAERS Safety Report 14097656 (Version 1)
Quarter: 2017Q4

REPORT INFORMATION
  Report Type: Spontaneous
  Country: US (occurrence: US)
  Receive Date: 20171016
  Receipt Date: 20171016
  Transmission Date: 20180321
  Serious: No
  Sender: FDA-Public Use
  Company Number: US-AMGEN-USASP2016182393

PATIENT
  Age: 71 Year
  Sex: Female
  Weight: 73.16 kg

DRUGS (1)
  1. PROLIA [Suspect]
     Active Substance: DENOSUMAB
     Indication: OSTEOPOROSIS POSTMENOPAUSAL
     Dosage: 60 MG, Q6MO
     Route: 065
     Dates: start: 20140807

REACTIONS (2)
  - Inappropriate schedule of drug administration [Unknown]
  - Exostosis of jaw [Unknown]

NARRATIVE: CASE EVENT DATE: 201607
